FAERS Safety Report 19376576 (Version 2)
Quarter: 2021Q2

REPORT INFORMATION
  Report Type: Report from Study
  Country: US (occurrence: US)
  Receive Date: 20210604
  Receipt Date: 20210610
  Transmission Date: 20210717
  Serious: Yes (Hospitalization)
  Sender: FDA-Public Use
  Company Number: US-JNJFOC-20210354737

PATIENT
  Age: 54 Year
  Sex: Female
  Weight: 53 kg

DRUGS (25)
  1. ACETAMINOPHEN. [Concomitant]
     Active Substance: ACETAMINOPHEN
     Indication: PROPHYLAXIS
     Route: 065
     Dates: start: 20191204
  2. GABAPENTIN. [Concomitant]
     Active Substance: GABAPENTIN
     Indication: PERIPHERAL SENSORY NEUROPATHY
     Route: 065
     Dates: start: 20200728
  3. HYDROMORPHONE [Concomitant]
     Active Substance: HYDROMORPHONE
     Indication: PAIN PROPHYLAXIS
     Route: 065
     Dates: start: 20201019
  4. HALOBETASOL [Concomitant]
     Active Substance: HALOBETASOL PROPIONATE
     Indication: NAIL DISORDER
     Route: 065
     Dates: start: 20201110
  5. AMMONIUM LACTATE. [Concomitant]
     Active Substance: AMMONIUM LACTATE
     Indication: DRY SKIN
     Route: 061
     Dates: start: 20210121
  6. ERDAFITINIB. [Suspect]
     Active Substance: ERDAFITINIB
     Route: 048
     Dates: start: 20210403, end: 20210411
  7. ERDAFITINIB. [Suspect]
     Active Substance: ERDAFITINIB
     Route: 048
     Dates: start: 20201026, end: 20201109
  8. ONDANSETRON [Concomitant]
     Active Substance: ONDANSETRON
     Indication: PROPHYLAXIS
     Route: 065
     Dates: start: 20201019
  9. CEVIMELINE. [Concomitant]
     Active Substance: CEVIMELINE
     Indication: STOMATITIS
     Route: 065
     Dates: start: 20201209
  10. CLOBETASOL PROPIONATE. [Concomitant]
     Active Substance: CLOBETASOL PROPIONATE
     Indication: PALMAR-PLANTAR ERYTHRODYSAESTHESIA SYNDROME
     Route: 065
     Dates: start: 20210120
  11. ERDAFITINIB. [Suspect]
     Active Substance: ERDAFITINIB
     Route: 048
     Dates: start: 20201110, end: 20201113
  12. OMEPRAZOLE. [Concomitant]
     Active Substance: OMEPRAZOLE
     Indication: PROPHYLAXIS
     Route: 065
     Dates: start: 20201109
  13. CLOTRIMAZOLE. [Concomitant]
     Active Substance: CLOTRIMAZOLE
     Indication: STOMATITIS
     Route: 065
     Dates: start: 20201209
  14. LORAZEPAM. [Concomitant]
     Active Substance: LORAZEPAM
     Indication: SLEEP DISORDER THERAPY
     Route: 065
     Dates: start: 20201020
  15. UREA. [Concomitant]
     Active Substance: UREA
     Indication: PROPHYLAXIS
     Route: 065
     Dates: start: 20201026
  16. DEXAMETHASONE. [Concomitant]
     Active Substance: DEXAMETHASONE
     Indication: PROPHYLAXIS
     Route: 048
  17. SENNA [SENNA ALEXANDRINA] [Concomitant]
     Active Substance: SENNA LEAF
     Indication: CONSTIPATION
     Route: 065
     Dates: start: 20201207
  18. CELEBREX [Concomitant]
     Active Substance: CELECOXIB
     Indication: PAIN IN EXTREMITY
     Route: 065
     Dates: start: 20210121
  19. ERDAFITINIB. [Suspect]
     Active Substance: ERDAFITINIB
     Indication: BREAST CANCER METASTATIC
     Dosage: STUDY DOSE WAS SKIPPED FROM 26?JAN?2021 TO 07?FEB?2021 DUE TO PALMAR?PLANTAR ERYTHRODYSAESTHESIA SYN
     Route: 048
     Dates: start: 20201115, end: 20210121
  20. MINOXIDIL. [Concomitant]
     Active Substance: MINOXIDIL
     Indication: PROPHYLAXIS
     Route: 065
     Dates: start: 20201026
  21. ERDAFITINIB. [Suspect]
     Active Substance: ERDAFITINIB
     Route: 048
     Dates: start: 20210208, end: 20210226
  22. PENLAC [Concomitant]
     Active Substance: CICLOPIROX
     Indication: NAIL DISORDER
     Route: 061
     Dates: start: 20210210
  23. ERDAFITINIB. [Suspect]
     Active Substance: ERDAFITINIB
     Route: 048
     Dates: start: 20210302, end: 20210302
  24. ERDAFITINIB. [Suspect]
     Active Substance: ERDAFITINIB
     Dosage: DOSE OF 8 MG ORAL WAS SKIPPED FORM 24?MAR?2021 TO 02 ?APR?2021 FOR CHAPPED SKIN AND HEADACHE
     Route: 048
     Dates: start: 20210322, end: 20210323
  25. DULOXETINE. [Concomitant]
     Active Substance: DULOXETINE
     Indication: PERIPHERAL SENSORY NEUROPATHY
     Route: 065
     Dates: start: 20201007

REACTIONS (5)
  - Stomatitis [Recovered/Resolved]
  - Muscular weakness [Recovered/Resolved]
  - Peripheral sensory neuropathy [Recovered/Resolved]
  - Vision blurred [Recovered/Resolved]
  - Constipation [Recovered/Resolved]

NARRATIVE: CASE EVENT DATE: 20210324
